FAERS Safety Report 9376132 (Version 1)
Quarter: 2013Q2

REPORT INFORMATION
  Report Type: Spontaneous
  Country: TR (occurrence: TR)
  Receive Date: 20130630
  Receipt Date: 20130630
  Transmission Date: 20140414
  Serious: Yes (Other)
  Sender: FDA-Public Use
  Company Number: TR-TEVA-415673ISR

PATIENT
  Age: 16 Year
  Sex: Female

DRUGS (2)
  1. FLUOXETINE [Suspect]
     Indication: CONVERSION DISORDER
     Dosage: 20 MILLIGRAM DAILY;
  2. LEVETIRACETAM [Concomitant]
     Indication: EPILEPSY
     Dosage: 1000 MILLIGRAM DAILY;

REACTIONS (1)
  - Opisthotonus [Recovered/Resolved]
